FAERS Safety Report 10012761 (Version 1)
Quarter: 2014Q1

REPORT INFORMATION
  Report Type: Spontaneous
  Country: GB (occurrence: GB)
  Receive Date: 20140314
  Receipt Date: 20140314
  Transmission Date: 20141002
  Serious: Yes (Hospitalization)
  Sender: FDA-Public Use
  Company Number: GB-PFIZER INC-2014070901

PATIENT
  Sex: Female

DRUGS (7)
  1. EXEMESTANE [Suspect]
     Indication: BREAST CANCER
  2. EVEROLIMUS [Suspect]
     Indication: BREAST CANCER
     Dosage: UNK
     Dates: start: 20130520
  3. EVEROLIMUS [Suspect]
     Dosage: 10 MG, UNK
  4. DENOSUMAB [Concomitant]
  5. FENTANYL [Concomitant]
  6. ORAMORPH [Concomitant]
  7. ZOMORPH [Concomitant]

REACTIONS (22)
  - Appendicitis [Recovering/Resolving]
  - Abdominal pain upper [Unknown]
  - Body temperature increased [Unknown]
  - Constipation [Unknown]
  - Nausea [Unknown]
  - Decreased appetite [Recovering/Resolving]
  - Dysgeusia [Unknown]
  - Pruritus [Unknown]
  - Skin discolouration [Unknown]
  - Lymphoedema [Unknown]
  - Mouth ulceration [Recovering/Resolving]
  - Epistaxis [Unknown]
  - Pain [Unknown]
  - Acne [Unknown]
  - Rash generalised [Recovering/Resolving]
  - Malaise [Unknown]
  - Disease progression [Unknown]
  - Breast cancer [Unknown]
  - Diarrhoea [Unknown]
  - Fatigue [Unknown]
  - Agitation [Unknown]
  - Restlessness [Unknown]
